FAERS Safety Report 6750995-6 (Version None)
Quarter: 2010Q2

REPORT INFORMATION
  Report Type: 
  Country: None (occurrence: None)
  Receive Date: 20100526
  Receipt Date: 20100514
  Transmission Date: 20101027
  Serious: Yes (Hospitalization)
  Sender: FDA-Public Use
  Company Number: 583987

PATIENT
  Age: 74 Year
  Sex: Female

DRUGS (7)
  1. OXALIPLATIN [Suspect]
     Indication: COLON CANCER STAGE III
     Dosage: 85 MG/M 2 MILLIGRAM(S) /SW. METER,
  2. FLUOROURACIL [Suspect]
     Indication: COLON CANCER STAGE III
     Dosage: 1000 MG/M 2 MILLIGRAM(S) /SW. METER,
  3. LEUCOVORIN CALCIUM [Suspect]
     Indication: COLON CANCER STAGE III
     Dosage: 200 MG/M 2 MILLIGRAM(S) /SW. METER,
  4. (CANDESARTAN) [Concomitant]
  5. AMLODIPINE [Concomitant]
  6. (ATORVASTATIN) [Concomitant]
  7. LEVOTHYROXINE SODIUM [Concomitant]

REACTIONS (1)
  - ORGANISING PNEUMONIA [None]
